FAERS Safety Report 10348385 (Version 1)
Quarter: 2014Q3

REPORT INFORMATION
  Report Type: Spontaneous
  Country: US (occurrence: US)
  Receive Date: 20140729
  Receipt Date: 20140729
  Transmission Date: 20150326
  Serious: No
  Sender: FDA-Public Use
  Company Number: US-009507513-1407USA006137

PATIENT

DRUGS (1)
  1. CLARITIN REDITABS [Suspect]
     Active Substance: LORATADINE
     Indication: SINUSITIS
     Dosage: UNK, UNKNOWN
     Route: 048

REACTIONS (2)
  - Vertigo [Unknown]
  - Off label use [Unknown]
